FAERS Safety Report 13667298 (Version 1)
Quarter: 2017Q2

REPORT INFORMATION
  Report Type: Spontaneous
  Country: GB (occurrence: GB)
  Receive Date: 20170619
  Receipt Date: 20170619
  Transmission Date: 20170830
  Serious: Yes (Disabling)
  Sender: FDA-Public Use
  Company Number: GB-TORRENT-00015342

PATIENT
  Age: 72 Year
  Sex: Male
  Weight: 69 kg

DRUGS (11)
  1. BISOPROLOL [Concomitant]
     Active Substance: BISOPROLOL
  2. LOSARTAN. [Concomitant]
     Active Substance: LOSARTAN
  3. SIMVASTATIN. [Concomitant]
     Active Substance: SIMVASTATIN
  4. QUININE [Concomitant]
     Active Substance: QUININE
  5. DULOXETINE. [Suspect]
     Active Substance: DULOXETINE
  6. COCODAMOL [Concomitant]
     Active Substance: ACETAMINOPHEN\CODEINE PHOSPHATE
  7. LEVOTHYROXINE. [Concomitant]
     Active Substance: LEVOTHYROXINE
  8. FOLIC ACID. [Concomitant]
     Active Substance: FOLIC ACID
  9. CLOPIDOGREL [Concomitant]
     Active Substance: CLOPIDOGREL BISULFATE
  10. COLECALCIFEROL [Concomitant]
     Active Substance: CHOLECALCIFEROL
  11. EURAX [Concomitant]
     Active Substance: CROTAMITON

REACTIONS (6)
  - Withdrawal syndrome [Not Recovered/Not Resolved]
  - Aggression [Unknown]
  - Anxiety [Unknown]
  - Nightmare [Unknown]
  - Affect lability [Unknown]
  - Tearfulness [Unknown]

NARRATIVE: CASE EVENT DATE: 20170524
